FAERS Safety Report 6780045-7 (Version None)
Quarter: 2010Q2

REPORT INFORMATION
  Report Type: 
  Country: None (occurrence: None)
  Receive Date: 20100618
  Receipt Date: 20100608
  Transmission Date: 20101027
  Serious: Yes (Hospitalization, Other)
  Sender: FDA-Public Use
  Company Number: US-PFIZER INC-2010072356

PATIENT
  Sex: Female
  Weight: 69.388 kg

DRUGS (4)
  1. XANAX [Suspect]
     Indication: ANXIETY
     Dosage: UNK
     Route: 048
     Dates: start: 20050101
  2. AROMASIN [Suspect]
     Indication: NEOPLASM PROPHYLAXIS
     Dosage: 25 MG, DAILY
     Route: 048
     Dates: start: 20080301
  3. TYLENOL [Suspect]
     Indication: BONE PAIN
     Dosage: 500 MG, 4X/DAY
     Route: 048
     Dates: start: 20091101
  4. PROZAC [Suspect]
     Indication: ANXIETY
     Dosage: UNK
     Route: 048
     Dates: start: 20050101

REACTIONS (4)
  - BONE PAIN [None]
  - BREAST CANCER [None]
  - HYPOAESTHESIA [None]
  - PLATELET COUNT DECREASED [None]
